FAERS Safety Report 20536792 (Version 1)
Quarter: 2022Q1

REPORT INFORMATION
  Report Type: Report from Study
  Country: DE (occurrence: DE)
  Receive Date: 20220302
  Receipt Date: 20220302
  Transmission Date: 20220423
  Serious: Yes (Other)
  Sender: FDA-Public Use
  Company Number: DE-JNJFOC-20220246141

PATIENT
  Age: 50 Year
  Sex: Male
  Weight: 70 kg

DRUGS (2)
  1. ESKETAMINE [Suspect]
     Active Substance: ESKETAMINE
     Indication: Major depression
     Dates: start: 202111
  2. ESKETAMINE [Suspect]
     Active Substance: ESKETAMINE
     Indication: Mental disorder

REACTIONS (5)
  - Fear of death [Unknown]
  - Panic disorder [Unknown]
  - Feeling abnormal [Unknown]
  - Dissociation [Unknown]
  - Dizziness [Unknown]

NARRATIVE: CASE EVENT DATE: 20211101
